FAERS Safety Report 14352364 (Version 2)
Quarter: 2018Q2

REPORT INFORMATION
  Report Type: Spontaneous
  Country: FR (occurrence: FR)
  Receive Date: 20180104
  Receipt Date: 20180419
  Transmission Date: 20180711
  Serious: Yes (Death, Hospitalization)
  Sender: FDA-Public Use
  Company Number: FR-PFIZER INC-2018000932

PATIENT
  Age: 91 Year
  Sex: Female

DRUGS (3)
  1. LYRICA [Suspect]
     Active Substance: PREGABALIN
     Dosage: UNK
     Route: 048
  2. TRAMADOL BASE [Suspect]
     Active Substance: TRAMADOL
     Indication: POISONING DELIBERATE
     Dosage: 350 MG, SINGLE
     Route: 048
     Dates: start: 20171208, end: 20171208
  3. LAMALINE (ACETAMINOPHEN\BELLADONNA LEAF\CAFFEINE\OPIUM) [Suspect]
     Active Substance: ACETAMINOPHEN\BELLADONNA LEAF\CAFFEINE\OPIUM
     Dosage: UNK
     Route: 048

REACTIONS (2)
  - Somnolence [Unknown]
  - Pneumonia aspiration [Fatal]

NARRATIVE: CASE EVENT DATE: 20171208
